FAERS Safety Report 4860273-8 (Version None)
Quarter: 2005Q4

REPORT INFORMATION
  Report Type: 
  Country: None (occurrence: None)
  Receive Date: 20051215
  Receipt Date: 20051204
  Transmission Date: 20060501
  Serious: Yes (Other)
  Sender: FDA-Public Use
  Company Number: 2005163064

PATIENT
  Sex: Male

DRUGS (1)
  1. MECLIZINE [Suspect]
     Dosage: 18 TABLETS ONCE, ORAL
     Route: 048
     Dates: start: 20051204, end: 20051204

REACTIONS (3)
  - EUPHORIC MOOD [None]
  - HALLUCINATION, VISUAL [None]
  - OVERDOSE [None]
